FAERS Safety Report 4408621-7 (Version None)
Quarter: 2004Q3

REPORT INFORMATION
  Report Type: 
  Country: None (occurrence: None)
  Receive Date: 20040723
  Receipt Date: 20040709
  Transmission Date: 20050211
  Serious: Yes (Hospitalization, Other)
  Sender: FDA-Public Use
  Company Number: S04-FRA-02631-01

PATIENT
  Age: 77 Year
  Sex: Female

DRUGS (5)
  1. MEMANTINE HCL [Suspect]
     Indication: DEMENTIA ALZHEIMER'S TYPE
     Dosage: SEE IMAGE
     Route: 048
     Dates: end: 20040614
  2. MEMANTINE HCL [Suspect]
     Indication: DEMENTIA ALZHEIMER'S TYPE
     Dosage: SEE IMAGE
     Route: 048
     Dates: start: 20040528
  3. CELECTOL [Concomitant]
  4. ASPIRIN [Concomitant]
  5. AMILORIDE W/HYDROCHLORTHIAZIDE [Concomitant]

REACTIONS (1)
  - HEPATITIS [None]
